FAERS Safety Report 17974327 (Version 1)
Quarter: 2020Q3

REPORT INFORMATION
  Report Type: Spontaneous
  Country: US (occurrence: US)
  Receive Date: 20200702
  Receipt Date: 20200702
  Transmission Date: 20201103
  Serious: Yes (Hospitalization)
  Sender: FDA-Public Use
  Company Number: None

PATIENT
  Sex: Female

DRUGS (6)
  1. CAPECITABINE. [Suspect]
     Active Substance: CAPECITABINE
     Indication: BREAST CANCER
     Route: 048
     Dates: start: 20200402
  2. HERCEPTIN [Concomitant]
     Active Substance: TRASTUZUMAB
  3. ONDANSETRON [Concomitant]
     Active Substance: ONDANSETRON
  4. PSEUDOEPHEDR [Concomitant]
  5. TESSALON [Concomitant]
     Active Substance: BENZONATATE
  6. LISINOPRIL. [Concomitant]
     Active Substance: LISINOPRIL

REACTIONS (2)
  - Product dose omission issue [None]
  - Dehydration [None]
